FAERS Safety Report 19785908 (Version 1)
Quarter: 2021Q3

REPORT INFORMATION
  Report Type: Report from Study
  Country: CA (occurrence: CA)
  Receive Date: 20210903
  Receipt Date: 20210903
  Transmission Date: 20211014
  Serious: Yes (Other)
  Sender: FDA-Public Use
  Company Number: CA-BAYER-2021-201294

PATIENT
  Age: 35 Year
  Sex: Female
  Weight: 61.8 kg

DRUGS (1)
  1. KYLEENA [Suspect]
     Active Substance: LEVONORGESTREL
     Indication: HEAVY MENSTRUAL BLEEDING
     Dosage: 17.5 ?G PER DAY CONTINUOUSLY
     Route: 015
     Dates: start: 20210827, end: 20210827

REACTIONS (3)
  - Complication of device insertion [None]
  - Uterine perforation [None]
  - Device breakage [Recovered/Resolved]

NARRATIVE: CASE EVENT DATE: 20210827
